FAERS Safety Report 14505269 (Version 3)
Quarter: 2018Q2

REPORT INFORMATION
  Report Type: Report from Study
  Country: US (occurrence: US)
  Receive Date: 20180208
  Receipt Date: 20180403
  Transmission Date: 20180711
  Serious: Yes (Hospitalization)
  Sender: FDA-Public Use
  Company Number: US-EISAI MEDICAL RESEARCH-EC-2017-034621

PATIENT
  Age: 53 Year
  Sex: Male
  Weight: 107 kg

DRUGS (15)
  1. AMLODIPINE BESYLATE. [Concomitant]
     Active Substance: AMLODIPINE BESYLATE
  2. HYDROCORTISONE-ALOE [Concomitant]
  3. TRUVADA [Concomitant]
     Active Substance: EMTRICITABINE\TENOFOVIR DISOPROXIL FUMARATE
  4. PREDNISONE. [Concomitant]
     Active Substance: PREDNISONE
  5. URSODIOL. [Concomitant]
     Active Substance: URSODIOL
  6. TACROLIMUS. [Concomitant]
     Active Substance: TACROLIMUS
  7. LENVIMA [Suspect]
     Active Substance: LENVATINIB
     Route: 048
     Dates: start: 2018, end: 2018
  8. AFINITOR/ZORTRESS [Concomitant]
  9. LENVIMA [Suspect]
     Active Substance: LENVATINIB
     Route: 048
     Dates: start: 2018, end: 2018
  10. LOPERAMIDE [Concomitant]
     Active Substance: LOPERAMIDE
  11. DOXYCYCLINE HYCLATE. [Concomitant]
     Active Substance: DOXYCYCLINE HYCLATE
  12. ASPIRIN. [Concomitant]
     Active Substance: ASPIRIN
  13. LENVIMA [Suspect]
     Active Substance: LENVATINIB
     Indication: HEPATIC CANCER
     Route: 048
     Dates: start: 20171219, end: 201801
  14. OMEPRAZOLE. [Concomitant]
     Active Substance: OMEPRAZOLE
  15. RANITIDINE. [Concomitant]
     Active Substance: RANITIDINE

REACTIONS (6)
  - Abdominal pain upper [Unknown]
  - Myalgia [Unknown]
  - Headache [Unknown]
  - Hypertension [Not Recovered/Not Resolved]
  - Nasal congestion [Unknown]
  - Constipation [Unknown]

NARRATIVE: CASE EVENT DATE: 201712
